FAERS Safety Report 21420173 (Version 2)
Quarter: 2022Q4

REPORT INFORMATION
  Report Type: Report from Study
  Country: BR (occurrence: BR)
  Receive Date: 20221007
  Receipt Date: 20221011
  Transmission Date: 20230113
  Serious: Yes (Disabling, Other)
  Sender: FDA-Public Use
  Company Number: BR-ABBVIE-4140514

PATIENT
  Sex: Female
  Weight: 76 kg

DRUGS (9)
  1. HUMIRA [Suspect]
     Active Substance: ADALIMUMAB
     Indication: Rheumatoid arthritis
     Dosage: MORE THAN 10 YEARS AGO
     Dates: end: 2022
  2. RINVOQ [Suspect]
     Active Substance: UPADACITINIB
     Indication: Rheumatoid arthritis
     Route: 048
  3. REGULAR [Concomitant]
     Active Substance: SODIUM MONOFLUOROPHOSPHATE
     Indication: Product used for unknown indication
     Dosage: 15 MILLIGRAM/MILLILITERS
  4. GLIFAGE [Concomitant]
     Active Substance: METFORMIN HYDROCHLORIDE
     Indication: Product used for unknown indication
  5. VITAMIN D [Concomitant]
     Active Substance: VITAMIN D NOS
     Indication: Product used for unknown indication
  6. NPH INSULIN [Concomitant]
     Active Substance: INSULIN BEEF
     Indication: Product used for unknown indication
     Dosage: 30 MILLIGRAM/MILLILITERS
  7. INSULIN NOS [Concomitant]
     Active Substance: INSULIN NOS
     Indication: Product used for unknown indication
  8. NAPROXEN [Concomitant]
     Active Substance: NAPROXEN
     Indication: Product used for unknown indication
  9. GLICLAZIDE [Concomitant]
     Active Substance: GLICLAZIDE
     Indication: Product used for unknown indication

REACTIONS (11)
  - Joint injury [Recovered/Resolved]
  - Arthropathy [Unknown]
  - Arthralgia [Unknown]
  - Arthropathy [Unknown]
  - Osteoarthritis [Unknown]
  - Arthralgia [Recovered/Resolved]
  - Musculoskeletal discomfort [Unknown]
  - Movement disorder [Unknown]
  - Oedema peripheral [Recovered/Resolved]
  - Joint effusion [Unknown]
  - Immunodeficiency [Unknown]
